FAERS Safety Report 15107868 (Version 2)
Quarter: 2018Q3

REPORT INFORMATION
  Report Type: Report from Study
  Country: IT (occurrence: IT)
  Receive Date: 20180704
  Receipt Date: 20180713
  Transmission Date: 20181010
  Serious: Yes (Hospitalization)
  Sender: FDA-Public Use
  Company Number: IT-TEVA-2018-IT-919749

PATIENT
  Age: 62 Year
  Sex: Female

DRUGS (8)
  1. LEVOPRAID? 25 MG/ML GOCCE ORALI SOLUZIONE [Concomitant]
     Indication: ANXIETY
     Route: 048
     Dates: start: 20150101
  2. TRITTICO 75 MG COMPRESSE A RILASCIO PROLUNGATO [Suspect]
     Active Substance: TRAZODONE HYDROCHLORIDE
     Indication: SEDATION
     Route: 048
     Dates: start: 20180411, end: 20180411
  3. ALPRAZOLAM ABC 0,50 MG COMPRESSE [Concomitant]
     Indication: ANXIETY
     Route: 048
     Dates: start: 20150101
  4. FLUVOXAMINA EG 100 MG COMPRESSE RIVESTITE CON FILM [Concomitant]
     Indication: DEPRESSION
     Route: 048
     Dates: start: 20150101
  5. DALMADORM 30 MG CAPSULE RIGIDE [Concomitant]
     Active Substance: FLURAZEPAM\FLURAZEPAM HYDROCHLORIDE
     Indication: ANXIETY
     Route: 048
     Dates: start: 20150101
  6. QUETIAPINA TEVA ITALIA 300 MG, COMPRESSE A RILASCIO PROLUNGATO [Suspect]
     Active Substance: QUETIAPINE FUMARATE
     Indication: PSYCHOTIC DISORDER
     Route: 048
     Dates: start: 20180411, end: 20180411
  7. LORAZEPAM. [Suspect]
     Active Substance: LORAZEPAM
     Indication: ANXIETY
     Dates: start: 20180411, end: 20180411
  8. OLANZAPINA ACTAVIS PTC [Concomitant]
     Indication: PSYCHOTIC DISORDER
     Route: 048
     Dates: start: 20150101

REACTIONS (2)
  - Sopor [Recovered/Resolved]
  - Drug abuse [Recovered/Resolved]

NARRATIVE: CASE EVENT DATE: 20180411
